FAERS Safety Report 5078994-3 (Version None)
Quarter: 2006Q3

REPORT INFORMATION
  Report Type: 
  Country: None (occurrence: None)
  Receive Date: 20060814
  Receipt Date: 20060717
  Transmission Date: 20061208
  Serious: Yes (Hospitalization, Other)
  Sender: FDA-Public Use
  Company Number: PHEH2006US09142

PATIENT
  Age: 51 Year
  Sex: Male
  Weight: 77.097 kg

DRUGS (16)
  1. ZOMETA [Suspect]
     Dosage: 4 MG MONTHLY
     Dates: start: 20060615
  2. PREDNISONE [Concomitant]
     Indication: SWOLLEN TONGUE
     Dosage: 10 MG, UNK
  3. TAXOL [Concomitant]
     Dosage: 385 MG, UNK
  4. CARBOPLATIN [Concomitant]
  5. BETA BLOCKING AGENTS [Concomitant]
     Dosage: 200 MG, QD
  6. NORVASC [Concomitant]
     Indication: BLOOD PRESSURE
     Dosage: 5 MG, QD
  7. ARANESP [Concomitant]
     Dosage: 300 MEQ, QW
     Route: 058
  8. NEULASTA [Concomitant]
  9. BENADRYL ^PFIZER WARNER-LAMBERT^ [Concomitant]
     Dosage: 50 MG, UNK
  10. TAGAMET [Concomitant]
     Dosage: 300 MG, UNK
  11. ALOXI [Concomitant]
     Dosage: 0.25 MG, UNK
  12. DECADRON [Concomitant]
     Dosage: 20 MG, UNK
  13. COUMADIN [Concomitant]
  14. LOVENOX [Concomitant]
  15. ULTRAM [Concomitant]
     Dosage: 50-100 MG  PRN
  16. SOLU-MEDROL [Concomitant]
     Dosage: 100 MG, UNK

REACTIONS (53)
  - ABDOMINAL PAIN [None]
  - BACK PAIN [None]
  - BILIARY DILATATION [None]
  - BLOOD ALKALINE PHOSPHATASE INCREASED [None]
  - BLOOD AMYLASE INCREASED [None]
  - BLOOD CALCIUM DECREASED [None]
  - BLOOD GLUCOSE INCREASED [None]
  - BLOOD PRESSURE INCREASED [None]
  - BLOOD SODIUM DECREASED [None]
  - BODY TEMPERATURE INCREASED [None]
  - CHOLELITHIASIS [None]
  - CONSTIPATION [None]
  - DIVERTICULUM INTESTINAL [None]
  - DYSPEPSIA [None]
  - FLUSHING [None]
  - GALLBLADDER DISORDER [None]
  - GASTRIC POLYPS [None]
  - GASTRITIS [None]
  - GASTRITIS EROSIVE [None]
  - GASTROINTESTINAL HAEMORRHAGE [None]
  - GASTROOESOPHAGEAL REFLUX DISEASE [None]
  - HAEMATEMESIS [None]
  - HAEMATOCRIT DECREASED [None]
  - HAEMOGLOBIN DECREASED [None]
  - HEADACHE [None]
  - HEPATIC MASS [None]
  - HIATUS HERNIA [None]
  - IRON DEFICIENCY ANAEMIA [None]
  - JUGULAR VEIN THROMBOSIS [None]
  - LIPASE INCREASED [None]
  - LYMPHADENOPATHY [None]
  - METASTASES TO LYMPH NODES [None]
  - METASTASES TO OESOPHAGUS [None]
  - METASTASES TO SPINE [None]
  - MUSCULOSKELETAL PAIN [None]
  - NAUSEA [None]
  - NEOPLASM MALIGNANT [None]
  - NEURALGIA [None]
  - OEDEMA PERIPHERAL [None]
  - ORAL CANDIDIASIS [None]
  - PAIN [None]
  - PANCREATITIS ACUTE [None]
  - PYREXIA [None]
  - RED BLOOD CELL COUNT DECREASED [None]
  - SUBCLAVIAN VEIN THROMBOSIS [None]
  - SUBCUTANEOUS EMPHYSEMA [None]
  - SWELLING [None]
  - SWOLLEN TONGUE [None]
  - UPPER GASTROINTESTINAL HAEMORRHAGE [None]
  - VEIN DISORDER [None]
  - VOMITING [None]
  - WEIGHT DECREASED [None]
  - WHITE BLOOD CELL COUNT INCREASED [None]
